FAERS Safety Report 6665324-6 (Version None)
Quarter: 2010Q1

REPORT INFORMATION
  Report Type: 
  Country: None (occurrence: None)
  Receive Date: 20100323
  Receipt Date: 20100202
  Transmission Date: 20100710
  Serious: No
  Sender: FDA-Public Use
  Company Number: 100208-0000165

PATIENT
  Age: 21 Month
  Sex: Female

DRUGS (4)
  1. SABRIL [Suspect]
     Indication: INFANTILE SPASMS
     Dosage: 500 MG;BID;PO
     Route: 048
     Dates: start: 20100101
  2. PHENOBARBITAL [Concomitant]
  3. KEPPRA [Concomitant]
  4. TOPAMAX [Concomitant]

REACTIONS (1)
  - IRIS DISORDER [None]
